FAERS Safety Report 10587316 (Version 2)
Quarter: 2014Q4

REPORT INFORMATION
  Report Type: Report from Study
  Country: US (occurrence: US)
  Receive Date: 20141117
  Receipt Date: 20141121
  Transmission Date: 20150529
  Serious: Yes (Death)
  Sender: FDA-Public Use
  Company Number: US-ABBVIE-14K-163-1308983-00

PATIENT
  Age: 67 Year
  Sex: Male

DRUGS (4)
  1. HUMIRA [Suspect]
     Active Substance: ADALIMUMAB
     Indication: CROHN^S DISEASE
     Route: 058
     Dates: start: 201408
  2. HUMIRA [Suspect]
     Active Substance: ADALIMUMAB
     Indication: COLITIS
  3. UNKNOWN MEDICATION [Concomitant]
     Active Substance: UNSPECIFIED INGREDIENT
     Indication: HYPERTENSION
  4. UNKNOWN MEDICATION [Concomitant]
     Active Substance: UNSPECIFIED INGREDIENT
     Indication: DYSLIPIDAEMIA

REACTIONS (1)
  - Metastatic malignant melanoma [Fatal]

NARRATIVE: CASE EVENT DATE: 20140905
